FAERS Safety Report 9867010 (Version 8)
Quarter: 2014Q2

REPORT INFORMATION
  Report Type: Spontaneous
  Country: US (occurrence: US)
  Receive Date: 20140204
  Receipt Date: 20140626
  Transmission Date: 20141212
  Serious: Yes (Hospitalization, Disabling, Other)
  Sender: FDA-Public Use
  Company Number: US-009507513-1401USA014726

PATIENT
  Sex: Male
  Weight: 96.6 kg

DRUGS (3)
  1. JANUVIA [Suspect]
     Indication: TYPE 2 DIABETES MELLITUS
     Dosage: 100 MG, DAILY
     Route: 048
     Dates: end: 20110922
  2. JANUVIA [Suspect]
     Dosage: UNK
     Route: 048
     Dates: start: 20070111, end: 20080807
  3. JANUMET [Suspect]
     Indication: TYPE 2 DIABETES MELLITUS
     Dosage: 50/1000MG, BID
     Route: 048
     Dates: start: 20110926, end: 20120409

REACTIONS (35)
  - Pancreatic carcinoma [Not Recovered/Not Resolved]
  - Pancreatectomy [Unknown]
  - Gastrectomy [Unknown]
  - Prostate cancer [Unknown]
  - Ductal adenocarcinoma of pancreas [Unknown]
  - Carcinoma in situ [Unknown]
  - Small intestine carcinoma [Unknown]
  - Metastases to lymph nodes [Unknown]
  - Pancreatic neoplasm [Unknown]
  - Cholecystitis chronic [Not Recovered/Not Resolved]
  - Cholesterosis [Unknown]
  - Hypercholesterolaemia [Not Recovered/Not Resolved]
  - Nephrolithiasis [Recovered/Resolved]
  - Nephrolithiasis [Recovered/Resolved]
  - Benign prostatic hyperplasia [Unknown]
  - Spinal osteoarthritis [Unknown]
  - Cholelithiasis [Unknown]
  - Hepatic cyst [Unknown]
  - Laboratory test interference [Unknown]
  - Sexual dysfunction [Unknown]
  - Colon adenoma [Unknown]
  - Diverticulum intestinal [Not Recovered/Not Resolved]
  - Sinusitis [Unknown]
  - Arteriosclerosis coronary artery [Unknown]
  - Bladder hypertrophy [Unknown]
  - Abdominal distension [Unknown]
  - Pancreatic insufficiency [Unknown]
  - Radiotherapy [Unknown]
  - Dyslipidaemia [Unknown]
  - Liver function test abnormal [Unknown]
  - Aortic arteriosclerosis [Unknown]
  - Carotid arteriosclerosis [Unknown]
  - Hepatic steatosis [Unknown]
  - Proctitis [Unknown]
  - Arthralgia [Unknown]
